FAERS Safety Report 15014524 (Version 3)
Quarter: 2018Q3

REPORT INFORMATION
  Report Type: Spontaneous
  Country: AT (occurrence: AT)
  Receive Date: 20180615
  Receipt Date: 20180819
  Transmission Date: 20181010
  Serious: Yes (Other)
  Sender: FDA-Public Use
  Company Number: AT-BEH-2018091567

PATIENT
  Age: 34 Year
  Sex: Female

DRUGS (2)
  1. MIRENA [Suspect]
     Active Substance: LEVONORGESTREL
     Dosage: UNK
     Route: 015
     Dates: start: 20160118, end: 20180224
  2. RHOPHYLAC [Suspect]
     Active Substance: HUMAN RHO(D) IMMUNE GLOBULIN
     Indication: RHESUS ANTIGEN NEGATIVE
     Dosage: UNK
     Route: 065

REACTIONS (4)
  - Abdominal pain lower [Recovered/Resolved]
  - Dizziness [Unknown]
  - Ectopic pregnancy with contraceptive device [Recovered/Resolved]
  - Drug ineffective [Unknown]
